FAERS Safety Report 7305851-1 (Version None)
Quarter: 2011Q1

REPORT INFORMATION
  Report Type: 
  Country: None (occurrence: None)
  Receive Date: 20110209
  Receipt Date: 20110124
  Transmission Date: 20110831
  Serious: Yes (Life-Threatening, Hospitalization, Other)
  Sender: FDA-Public Use
  Company Number: APP201100080

PATIENT
  Age: 40 Year
  Sex: Female

DRUGS (2)
  1. PROGESTERONE [Suspect]
     Indication: INFERTILITY
     Dosage: DAILY
  2. CHORIONIC GONADOTROPIN INJ [Suspect]
     Indication: INFERTILITY
     Dosage: DAILY (DAYS 3-15)  ; DAILY (DAY 16) ; EVERY 3 DAYS

REACTIONS (12)
  - UTERINE ENLARGEMENT [None]
  - MULTI-ORGAN FAILURE [None]
  - ASPARTATE AMINOTRANSFERASE INCREASED [None]
  - RENAL FAILURE ACUTE [None]
  - RED BLOOD CELL SCHISTOCYTES PRESENT [None]
  - DISSEMINATED INTRAVASCULAR COAGULATION [None]
  - BLOOD BILIRUBIN INCREASED [None]
  - ACTIVATED PARTIAL THROMBOPLASTIN TIME PROLONGED [None]
  - ADENOMYOSIS [None]
  - ALANINE AMINOTRANSFERASE INCREASED [None]
  - WHITE BLOOD CELL COUNT INCREASED [None]
  - PROTHROMBIN TIME PROLONGED [None]
